FAERS Safety Report 5377054-1 (Version None)
Quarter: 2007Q2

REPORT INFORMATION
  Report Type: 
  Country: None (occurrence: None)
  Receive Date: 20070628
  Receipt Date: 20070628
  Transmission Date: 20071010
  Serious: Yes (Hospitalization)
  Sender: FDA-Public Use
  Company Number: None

PATIENT
  Sex: Male
  Weight: 102.0593 kg

DRUGS (1)
  1. MAGNEVIST [Suspect]
     Indication: HEADACHE
     Dosage: 20ML ONCE IV
     Route: 042
     Dates: start: 20070627, end: 20070627

REACTIONS (3)
  - CHEST PAIN [None]
  - DYSPNOEA [None]
  - VOMITING [None]
